FAERS Safety Report 5491085-2 (Version None)
Quarter: 2007Q4

REPORT INFORMATION
  Report Type: 
  Country: None (occurrence: None)
  Receive Date: 20071019
  Receipt Date: 20071008
  Transmission Date: 20080405
  Serious: Yes (Other)
  Sender: FDA-Public Use
  Company Number: DK-PFIZER INC-2007050030

PATIENT
  Age: 35 Year
  Sex: Male

DRUGS (1)
  1. CHAMPIX [Suspect]
     Indication: SMOKING CESSATION THERAPY
     Route: 048

REACTIONS (6)
  - DECREASED APPETITE [None]
  - DIPLOPIA [None]
  - FLATULENCE [None]
  - PHARYNGOLARYNGEAL PAIN [None]
  - RASH [None]
  - SPEECH DISORDER [None]
